FAERS Safety Report 5870145-8 (Version None)
Quarter: 2008Q3

REPORT INFORMATION
  Report Type: 
  Country: None (occurrence: None)
  Receive Date: 20080904
  Receipt Date: 20080818
  Transmission Date: 20090109
  Serious: Yes (Death, Hospitalization, Other)
  Sender: FDA-Public Use
  Company Number: CN-BAYER-200825337GPV

PATIENT
  Age: 56 Year
  Sex: Male

DRUGS (2)
  1. NEXAVAR [Suspect]
     Indication: HEPATIC NEOPLASM MALIGNANT
     Dosage: TOTAL DAILY DOSE: 800 MG
     Route: 048
     Dates: start: 20080621
  2. NEXAVAR [Suspect]
     Route: 048
     Dates: start: 20080101

REACTIONS (6)
  - ABDOMINAL DISTENSION [None]
  - ASCITES [None]
  - BILE DUCT OBSTRUCTION [None]
  - HEPATIC NEOPLASM MALIGNANT [None]
  - JAUNDICE HEPATOCELLULAR [None]
  - PYREXIA [None]
